FAERS Safety Report 7561692-1 (Version None)
Quarter: 2011Q2

REPORT INFORMATION
  Report Type: 
  Country: None (occurrence: None)
  Receive Date: 20110621
  Receipt Date: 20101130
  Transmission Date: 20111010
  Serious: No
  Sender: FDA-Public Use
  Company Number: US-ASTRAZENECA-2010SE48964

PATIENT
  Age: 923 Month
  Sex: Male
  Weight: 85.7 kg

DRUGS (16)
  1. SYMBICORT [Suspect]
     Dosage: 160/4.5 MCG, 2 PUFF, BID
     Route: 055
     Dates: start: 20100701, end: 20101023
  2. HYDROXYZINE HCL [Concomitant]
  3. SYMBICORT [Suspect]
     Dosage: 160/4.5 MCG, 2 PUFF, BID
     Route: 055
     Dates: start: 20100701, end: 20101023
  4. SYMBICORT [Suspect]
     Indication: CHRONIC OBSTRUCTIVE PULMONARY DISEASE
     Dosage: 160/4.5 MCG, 1 PUFF, BID
     Route: 055
     Dates: start: 20100801
  5. OMEPRAZOLE [Suspect]
     Indication: GASTROOESOPHAGEAL REFLUX DISEASE
     Route: 048
  6. CRESTOR [Suspect]
     Route: 048
  7. SPIRIVA [Concomitant]
     Dosage: 1 INHALATION DAILY
  8. SYMBICORT [Suspect]
     Indication: ASTHMA
     Dosage: 160/4.5 MCG, 1 PUFF, BID
     Route: 055
     Dates: start: 20100801
  9. MIDAMOR [Concomitant]
     Indication: VERTIGO
     Route: 048
  10. ROZERUM [Concomitant]
     Indication: SLEEP DISORDER
     Dosage: 4 MG AT NIGHT AS REQUIRED
     Route: 048
  11. TRIAMCINOLONE [Concomitant]
     Dosage: TWO TIMES A DAY
  12. CARAFATE [Concomitant]
     Route: 048
  13. VITAMIN TAB [Concomitant]
  14. RHINOCORT [Suspect]
     Dosage: 32 MCG 1-2 PUFFS BID
     Route: 045
  15. AMOXICILLIN [Concomitant]
     Route: 048
  16. ADVAIR DISKUS 100/50 [Concomitant]
     Dosage: 250/50 1 INHALATION TWO TIMES A DAY

REACTIONS (12)
  - LOWER RESPIRATORY TRACT INFECTION [None]
  - DYSPEPSIA [None]
  - MYALGIA [None]
  - NEURODERMATITIS [None]
  - NOCTURIA [None]
  - DYSPNOEA [None]
  - NERVOUSNESS [None]
  - NASOPHARYNGITIS [None]
  - RESPIRATORY TRACT CONGESTION [None]
  - JOINT EFFUSION [None]
  - COUGH [None]
  - INCORRECT DOSE ADMINISTERED [None]
